FAERS Safety Report 6572855-6 (Version None)
Quarter: 2010Q1

REPORT INFORMATION
  Report Type: 
  Country: None (occurrence: None)
  Receive Date: 20100205
  Receipt Date: 20100202
  Transmission Date: 20100710
  Serious: Yes (Death, Other)
  Sender: FDA-Public Use
  Company Number: BR-ABBOTT-10P-020-0623847-00

PATIENT
  Sex: Female

DRUGS (1)
  1. HUMIRA [Suspect]
     Indication: RHEUMATOID ARTHRITIS
     Route: 058
     Dates: start: 20080301

REACTIONS (2)
  - IMMUNOSUPPRESSION [None]
  - PNEUMOCYSTIS JIROVECI PNEUMONIA [None]
